FAERS Safety Report 4611627-6 (Version None)
Quarter: 2005Q1

REPORT INFORMATION
  Report Type: 
  Country: None (occurrence: None)
  Receive Date: 20050317
  Receipt Date: 20050309
  Transmission Date: 20050727
  Serious: Yes (Death, Hospitalization)
  Sender: FDA-Public Use
  Company Number: GB-ROCHE-397904

PATIENT
  Age: 68 Year
  Sex: Male
  Weight: 62.8 kg

DRUGS (9)
  1. CAPECITABINE [Suspect]
     Indication: RECTAL CANCER
     Route: 048
     Dates: start: 20050131, end: 20050301
  2. IRINOTECAN HCL [Suspect]
     Indication: RECTAL CANCER
     Route: 042
     Dates: start: 20050131, end: 20050221
  3. PRAVASTATIN [Concomitant]
     Route: 048
  4. DIPYRIDAMOLE [Concomitant]
     Route: 048
  5. ASPIRIN [Concomitant]
     Route: 048
  6. FERROUS SULFATE TAB [Concomitant]
     Route: 048
  7. MEGAVITAMINS [Concomitant]
     Indication: VITAMIN SUPPLEMENTATION
     Route: 048
  8. COD LIVER OIL [Concomitant]
     Route: 048
  9. DOTHIEPIN HYDROCHLORIDE [Concomitant]
     Route: 048

REACTIONS (3)
  - DEHYDRATION [None]
  - DIARRHOEA [None]
  - PNEUMONIA [None]
